FAERS Safety Report 19769228 (Version 3)
Quarter: 2021Q4

REPORT INFORMATION
  Report Type: Report from Study
  Country: US (occurrence: US)
  Receive Date: 20210831
  Receipt Date: 20211124
  Transmission Date: 20220303
  Serious: Yes (Other)
  Sender: FDA-Public Use
  Company Number: US-NOVARTISTESTPH-NVSC2021US196454

PATIENT
  Sex: Male

DRUGS (1)
  1. COSENTYX [Suspect]
     Active Substance: SECUKINUMAB
     Indication: Psoriatic arthropathy
     Dosage: UNK
     Route: 003

REACTIONS (4)
  - Psoriatic arthropathy [Recovering/Resolving]
  - Gouty arthritis [Recovering/Resolving]
  - Incorrect route of product administration [Unknown]
  - Inappropriate schedule of product administration [Unknown]
